FAERS Safety Report 6425010-4 (Version None)
Quarter: 2009Q4

REPORT INFORMATION
  Report Type: 
  Country: None (occurrence: None)
  Receive Date: 20091103
  Receipt Date: 20091026
  Transmission Date: 20100525
  Serious: Yes (Death)
  Sender: FDA-Public Use
  Company Number: GXKR2009DE11391

PATIENT
  Age: 64 Year

DRUGS (3)
  1. ACETYLSALICYLIC ACID SRT [Suspect]
     Indication: PROPHYLAXIS
     Dosage: 100 MG, UNK
     Route: 065
  2. CLOPIDOGREL (NGX) [Suspect]
     Indication: PROPHYLAXIS
     Dosage: 75 MG, UNK
     Route: 065
  3. PACLITAXEL [Concomitant]

REACTIONS (5)
  - ACUTE MYOCARDIAL INFARCTION [None]
  - CHEST PAIN [None]
  - CIRCULATORY COLLAPSE [None]
  - RESUSCITATION [None]
  - THROMBOSIS IN DEVICE [None]
